FAERS Safety Report 5046076-2 (Version None)
Quarter: 2006Q3

REPORT INFORMATION
  Report Type: 
  Country: None (occurrence: None)
  Receive Date: 20060710
  Receipt Date: 20060228
  Transmission Date: 20061208
  Serious: Yes (Hospitalization)
  Sender: FDA-Public Use
  Company Number: AU-GLAXOSMITHKLINE-B0413861A

PATIENT
  Age: 57 Year
  Sex: Female

DRUGS (4)
  1. NICABATE CQ 4MG LOZENGE [Suspect]
     Indication: SMOKING CESSATION THERAPY
     Dosage: 4MG SEVEN TIMES PER DAY
     Route: 002
     Dates: start: 20051101, end: 20060623
  2. VENTOLIN [Concomitant]
  3. SERETIDE [Concomitant]
  4. NICOTINE [Concomitant]
     Route: 062
     Dates: start: 20060601

REACTIONS (5)
  - ABNORMAL FAECES [None]
  - DIARRHOEA [None]
  - DIZZINESS [None]
  - FAECES DISCOLOURED [None]
  - FLATULENCE [None]
